FAERS Safety Report 17134537 (Version 1)
Quarter: 2019Q4

REPORT INFORMATION
  Report Type: Spontaneous
  Country: US (occurrence: US)
  Receive Date: 20191207
  Receipt Date: 20191207
  Transmission Date: 20200122
  Serious: No
  Sender: FDA-Public Use
  Company Number: None

PATIENT
  Age: 17 Month
  Sex: Female

DRUGS (1)
  1. HIZENTRA [Suspect]
     Active Substance: HUMAN IMMUNOGLOBULIN G
     Indication: IMMUNODEFICIENCY
     Dosage: DOSAGE 500MG/KG?OTHER STRENGTH 1GM/5ML
     Route: 042
     Dates: start: 201912

REACTIONS (1)
  - Off label use [None]

NARRATIVE: CASE EVENT DATE: 20191207
